FAERS Safety Report 5220946-4 (Version None)
Quarter: 2007Q1

REPORT INFORMATION
  Report Type: 
  Country: None (occurrence: None)
  Receive Date: 20070123
  Receipt Date: 20070108
  Transmission Date: 20070707
  Serious: Yes (Hospitalization)
  Sender: FDA-Public Use
  Company Number: 2007RR-05161

PATIENT
  Age: 40 Year
  Sex: Female

DRUGS (4)
  1. CLOMIPRAMINE HCL [Suspect]
     Dosage: 50 MG, ORAL
     Route: 048
  2. FLUOXETINE [Suspect]
     Dosage: 20 MG, ORAL
     Route: 048
  3. LORAZEPAM [Concomitant]
  4. AMITRIPTYLINE HCL [Suspect]
     Dosage: 50 MG

REACTIONS (13)
  - ALCOHOL POISONING [None]
  - CONFUSIONAL STATE [None]
  - DRUG INTERACTION [None]
  - DRY SKIN [None]
  - ELECTROCARDIOGRAM QRS COMPLEX PROLONGED [None]
  - GRAND MAL CONVULSION [None]
  - INTENTIONAL OVERDOSE [None]
  - METABOLIC ACIDOSIS [None]
  - MYDRIASIS [None]
  - SINUS TACHYCARDIA [None]
  - SKIN WARM [None]
  - SOMNOLENCE [None]
  - VENTRICULAR TACHYCARDIA [None]
